FAERS Safety Report 16229301 (Version 1)
Quarter: 2019Q2

REPORT INFORMATION
  Report Type: Spontaneous
  Country: CN (occurrence: CN)
  Receive Date: 20190423
  Receipt Date: 20190423
  Transmission Date: 20190711
  Serious: Yes (Life-Threatening)
  Sender: FDA-Public Use
  Company Number: CN-ASTRAZENECA-2019SE59263

PATIENT
  Age: 4094 Week
  Sex: Male
  Weight: 64 kg

DRUGS (2)
  1. TERBUTALINE SULFATE. [Suspect]
     Active Substance: TERBUTALINE SULFATE
     Indication: BRONCHITIS CHRONIC
     Dosage: 0.1 MG 2 ML INHALATION
     Route: 055
     Dates: start: 20190409, end: 20190409
  2. BUDESONIDE. [Suspect]
     Active Substance: BUDESONIDE
     Indication: BRONCHITIS CHRONIC
     Dosage: 2.0ML UNKNOWN
     Route: 055
     Dates: start: 20190409, end: 20190409

REACTIONS (1)
  - Dyspnoea [Recovering/Resolving]

NARRATIVE: CASE EVENT DATE: 20190409
